FAERS Safety Report 24255843 (Version 11)
Quarter: 2025Q3

REPORT INFORMATION
  Report Type: Report from Study
  Country: US (occurrence: US)
  Receive Date: 20240827
  Receipt Date: 20250910
  Transmission Date: 20251021
  Serious: Yes (Other)
  Sender: SUNOVION
  Company Number: US-SUMITOMO PHARMA SWITZERLAND GMBH-2024SPA000857

PATIENT
  Age: 87 Year
  Sex: Male

DRUGS (7)
  1. ORGOVYX [Suspect]
     Active Substance: RELUGOLIX
     Indication: Prostate cancer
     Dosage: 360 MG, SINGLE
     Route: 048
     Dates: start: 20240807, end: 20240807
  2. ORGOVYX [Suspect]
     Active Substance: RELUGOLIX
     Route: 048
  3. ORGOVYX [Suspect]
     Active Substance: RELUGOLIX
     Dosage: 120 MG, QOD
     Route: 048
     Dates: start: 202408
  4. ORGOVYX [Suspect]
     Active Substance: RELUGOLIX
     Dosage: 120 MG, QD
     Route: 048
     Dates: start: 20240808
  5. METFORMIN [Suspect]
     Active Substance: METFORMIN HYDROCHLORIDE
     Indication: Blood glucose increased
  6. PEPTO-BISMOL [Concomitant]
     Active Substance: BISMUTH SUBSALICYLATE
     Indication: Diarrhoea
  7. CEPHALEXIN [Concomitant]
     Active Substance: CEPHALEXIN

REACTIONS (24)
  - Pulmonary embolism [Unknown]
  - Renal impairment [Recovered/Resolved]
  - Cough [Unknown]
  - Nasopharyngitis [Unknown]
  - Fall [Unknown]
  - Joint injury [Unknown]
  - Platelet count decreased [Recovering/Resolving]
  - Blood pressure fluctuation [Unknown]
  - Blood glucose abnormal [Unknown]
  - Oedema peripheral [Unknown]
  - Skin fissures [Unknown]
  - Nocturia [Unknown]
  - Abdominal discomfort [Unknown]
  - Prostatic specific antigen increased [Unknown]
  - Body temperature abnormal [Unknown]
  - Activities of daily living decreased [Unknown]
  - General physical health deterioration [Unknown]
  - Energy increased [Unknown]
  - Hot flush [Recovering/Resolving]
  - Diarrhoea [Recovering/Resolving]
  - Depression [Unknown]
  - Blood glucose increased [Unknown]
  - Product dose omission in error [Unknown]
  - Inappropriate schedule of product administration [Unknown]
